FAERS Safety Report 6064176-5 (Version None)
Quarter: 2009Q1

REPORT INFORMATION
  Report Type: 
  Country: None (occurrence: None)
  Receive Date: 20090204
  Receipt Date: 20090107
  Transmission Date: 20090719
  Serious: Yes (Hospitalization, Other)
  Sender: FDA-Public Use
  Company Number: US-PFIZER INC-2003122270

PATIENT
  Sex: Female
  Weight: 102.4 kg

DRUGS (20)
  1. LIPITOR [Suspect]
     Indication: BLOOD CHOLESTEROL INCREASED
     Route: 048
  2. LIPITOR [Suspect]
     Indication: BLOOD TRIGLYCERIDES INCREASED
  3. TIKOSYN [Suspect]
     Indication: ATRIAL FIBRILLATION
     Dosage: 375 MG, UNK
     Route: 048
     Dates: start: 20030301
  4. EZETIMIBE [Suspect]
     Indication: BLOOD CHOLESTEROL INCREASED
     Dosage: DAILY
     Route: 065
     Dates: start: 20031126, end: 20031203
  5. EZETIMIBE [Suspect]
     Indication: BLOOD TRIGLYCERIDES INCREASED
  6. CELECOXIB [Suspect]
     Indication: ARTHRITIS
     Dosage: 200 MG, AS NEEDED
     Route: 048
  7. BISOPROLOL FUMARATE [Concomitant]
     Route: 048
  8. CLOPIDOGREL BISULFATE [Concomitant]
     Route: 048
     Dates: start: 20030101
  9. ACETYLSALICYLIC ACID SRT [Concomitant]
     Route: 048
     Dates: start: 20000101
  10. FUROSEMIDE [Concomitant]
     Route: 048
     Dates: start: 20000101
  11. GLIBENCLAMIDE [Concomitant]
     Route: 048
     Dates: start: 19960101
  12. POTASSIUM CHLORIDE [Concomitant]
     Route: 048
     Dates: start: 20000101
  13. ASCORBIC ACID [Concomitant]
     Route: 048
  14. TOCOPHEROL CONCENTRATE CAP [Concomitant]
     Route: 048
  15. MULTI-VITAMINS [Concomitant]
     Route: 048
  16. LECITHIN [Concomitant]
     Route: 048
  17. CALCIUM [Concomitant]
     Route: 048
  18. ALL OTHER THERAPEUTIC PRODUCTS [Concomitant]
     Route: 048
     Dates: start: 20030101, end: 20030101
  19. PSYLLIUM HYDROPHILIC MUCILLOID [Concomitant]
     Route: 048
  20. HYDROCODONE [Concomitant]

REACTIONS (15)
  - ARTHRITIS [None]
  - ASTHENIA [None]
  - ATRIAL FIBRILLATION [None]
  - BLOOD POTASSIUM DECREASED [None]
  - CHEST PAIN [None]
  - DIABETES MELLITUS [None]
  - DYSPNOEA [None]
  - HEADACHE [None]
  - HERPES ZOSTER [None]
  - HIP ARTHROPLASTY [None]
  - MUSCULAR WEAKNESS [None]
  - MYOCARDIAL INFARCTION [None]
  - PALPITATIONS [None]
  - PRURITUS [None]
  - SKIN LACERATION [None]
